FAERS Safety Report 7056100-3 (Version None)
Quarter: 2010Q4

REPORT INFORMATION
  Report Type: 
  Country: None (occurrence: None)
  Receive Date: 20101021
  Receipt Date: 20100428
  Transmission Date: 20110411
  Serious: No
  Sender: FDA-Public Use
  Company Number: US-TYCO HEALTHCARE/MALLINCKRODT-T201001127

PATIENT

DRUGS (3)
  1. ACETAMINOPHEN AND HYDROCODONE BITARTRATE [Suspect]
     Indication: INSOMNIA
     Dosage: 1/2 TO 1 TABLET AT BEDTIME
  2. KLONOPIN [Concomitant]
     Dosage: 0.5 UNK, UNK
  3. REQUIP [Concomitant]
     Indication: RESTLESS LEGS SYNDROME
     Dosage: UNK

REACTIONS (3)
  - ERYTHEMA [None]
  - PRURITUS GENERALISED [None]
  - RASH GENERALISED [None]
